FAERS Safety Report 4649337-1 (Version None)
Quarter: 2005Q2

REPORT INFORMATION
  Report Type: 
  Country: None (occurrence: None)
  Receive Date: 20050429
  Receipt Date: 20031007
  Transmission Date: 20051028
  Serious: Yes (Hospitalization, Other)
  Sender: FDA-Public Use
  Company Number: US-ABBOTT-03P-163-0236427-00

PATIENT
  Sex: Male
  Weight: 102.7 kg

DRUGS (4)
  1. VICODIN ES [Suspect]
     Indication: PAIN
     Route: 048
  2. STI 571 VS IFN-ALPHA+CYTARABINE [Suspect]
     Indication: CHRONIC MYELOID LEUKAEMIA
     Route: 058
     Dates: start: 20000928, end: 20001007
  3. STI 571 VS IFN-ALPHA+CYTARABINE [Suspect]
     Route: 058
     Dates: start: 20001010, end: 20001011
  4. HYDROXYCARBAMIDE [Concomitant]

REACTIONS (13)
  - ARTHRALGIA [None]
  - ASEPTIC NECROSIS BONE [None]
  - ASTHENIA [None]
  - CONDITION AGGRAVATED [None]
  - CONFUSIONAL STATE [None]
  - DEPRESSED LEVEL OF CONSCIOUSNESS [None]
  - DIZZINESS [None]
  - HEART RATE DECREASED [None]
  - HYPERHIDROSIS [None]
  - HYPOKALAEMIA [None]
  - JOINT EFFUSION [None]
  - NAUSEA [None]
  - PAIN IN EXTREMITY [None]
